FAERS Safety Report 7895295-6 (Version None)
Quarter: 2011Q4

REPORT INFORMATION
  Report Type: 
  Country: None (occurrence: None)
  Receive Date: 20111102
  Receipt Date: 20111014
  Transmission Date: 20120403
  Serious: Yes (Hospitalization)
  Sender: FDA-Public Use
  Company Number: 2011SP003628

PATIENT
  Age: 63 Year
  Sex: Female

DRUGS (7)
  1. ALPRAZOLAM [Concomitant]
  2. BELLANDONNA HERB [Concomitant]
  3. ZOCOR [Concomitant]
  4. NEXIUM [Concomitant]
  5. ALBUTEROL [Concomitant]
  6. ATROVENT [Concomitant]
  7. XOPENEX [Suspect]
     Dosage: 90 UG;PRN;INHALATION
     Route: 055
     Dates: start: 20100101

REACTIONS (6)
  - DYSPEPSIA [None]
  - NON-CARDIAC CHEST PAIN [None]
  - MUSCLE SPASMS [None]
  - HEADACHE [None]
  - CONDITION AGGRAVATED [None]
  - GASTROOESOPHAGEAL REFLUX DISEASE [None]
